FAERS Safety Report 5899609-8 (Version None)
Quarter: 2008Q3

REPORT INFORMATION
  Report Type: 
  Country: None (occurrence: None)
  Receive Date: 20080926
  Receipt Date: 20080922
  Transmission Date: 20090109
  Serious: Yes (Other)
  Sender: FDA-Public Use
  Company Number: PHEH2008US08457

PATIENT
  Sex: Female

DRUGS (1)
  1. VIVELLE-DOT [Suspect]
     Dosage: UNK
     Route: 062
     Dates: start: 20070401

REACTIONS (7)
  - BLOOD CALCIUM INCREASED [None]
  - CHEST DISCOMFORT [None]
  - EYE MOVEMENT DISORDER [None]
  - HYPOAESTHESIA FACIAL [None]
  - LIMB DISCOMFORT [None]
  - MUSCULAR WEAKNESS [None]
  - SURGERY [None]
